FAERS Safety Report 8589227-5 (Version None)
Quarter: 2012Q2

REPORT INFORMATION
  Report Type: 
  Country: None (occurrence: None)
  Receive Date: 20120423
  Receipt Date: 20090610
  Transmission Date: 20120825
  Serious: Yes (Other)
  Sender: FDA-Public Use
  Company Number: PHEH2009US06046

PATIENT
  Sex: Female

DRUGS (1)
  1. METOPROLOL TARTRATE [Suspect]
     Dosage: 25 MG

REACTIONS (4)
  - MUSCULOSKELETAL PAIN [None]
  - BACK PAIN [None]
  - AFFECT LABILITY [None]
  - AMNESIA [None]
